FAERS Safety Report 20820357 (Version 1)
Quarter: 2022Q2

REPORT INFORMATION
  Report Type: Spontaneous
  Country: HR (occurrence: HR)
  Receive Date: 20220512
  Receipt Date: 20220512
  Transmission Date: 20220720
  Serious: Yes (Other)
  Sender: FDA-Public Use
  Company Number: None

PATIENT
  Age: 56 Year
  Sex: Male
  Weight: 92 kg

DRUGS (3)
  1. ROSUVASTATIN CALCIUM [Suspect]
     Active Substance: ROSUVASTATIN CALCIUM
     Indication: Acute myocardial infarction
     Dosage: 40 MG, QD
     Route: 048
     Dates: start: 20211019, end: 20211130
  2. HYDROCHLOROTHIAZIDE\RAMIPRIL [Concomitant]
     Active Substance: HYDROCHLOROTHIAZIDE\RAMIPRIL
     Indication: Essential hypertension
     Dosage: 1 DOSAGE FORM, QD (DF= 2,5 RAMIPRIL +12,5 HYDROCHLOROTHIAZIDE)
     Route: 048
     Dates: start: 20200306
  3. BISOPROLOL FUMARATE [Concomitant]
     Active Substance: BISOPROLOL FUMARATE
     Indication: Essential hypertension
     Dosage: 5 MG, QD
     Route: 048
     Dates: start: 20170719

REACTIONS (3)
  - Medication error [Recovered/Resolved]
  - Libido disorder [Recovered/Resolved]
  - Erectile dysfunction [Recovered/Resolved]

NARRATIVE: CASE EVENT DATE: 20211112
